FAERS Safety Report 8524265-X (Version None)
Quarter: 2012Q3

REPORT INFORMATION
  Report Type: 
  Country: None (occurrence: None)
  Receive Date: 20120720
  Receipt Date: 20120716
  Transmission Date: 20120928
  Serious: Yes (Hospitalization)
  Sender: FDA-Public Use
  Company Number: US-AMGEN-USASP2012044125

PATIENT
  Age: 52 Year
  Sex: Female

DRUGS (1)
  1. ENBREL [Suspect]
     Indication: PSORIATIC ARTHROPATHY
     Dosage: 50 MG, QWK
     Dates: start: 20120402

REACTIONS (9)
  - INJECTION SITE SWELLING [None]
  - OROPHARYNGEAL PAIN [None]
  - INJECTION SITE WARMTH [None]
  - VOMITING [None]
  - INJECTION SITE ERYTHEMA [None]
  - INJECTION SITE PRURITUS [None]
  - HEPATIC STEATOSIS [None]
  - DIARRHOEA [None]
  - INJECTION SITE PAIN [None]
